FAERS Safety Report 15717849 (Version 1)
Quarter: 2018Q4

REPORT INFORMATION
  Report Type: Spontaneous
  Country: US (occurrence: US)
  Receive Date: 20181129
  Receipt Date: 20181129
  Transmission Date: 20190205
  Serious: No
  Sender: FDA-Public Use
  Company Number: None

PATIENT
  Age: 54 Year
  Sex: Male

DRUGS (2)
  1. FLUOROURACIL. [Suspect]
     Active Substance: FLUOROURACIL
     Indication: PANCREATIC CARCINOMA
  2. IRINOTECAN INJ 100MG/5ML [Suspect]
     Active Substance: IRINOTECAN
     Indication: PANCREATIC CARCINOMA

REACTIONS (2)
  - Pharyngeal oedema [None]
  - Neuropathy peripheral [None]

NARRATIVE: CASE EVENT DATE: 20181128
